FAERS Safety Report 5458676-6 (Version None)
Quarter: 2007Q3

REPORT INFORMATION
  Report Type: 
  Country: None (occurrence: None)
  Receive Date: 20070919
  Receipt Date: 20070417
  Transmission Date: 20080115
  Serious: Yes (Other)
  Sender: FDA-Public Use
  Company Number: US-ASTRAZENECA-2007UW07569

PATIENT
  Sex: Male

DRUGS (4)
  1. SEROQUEL [Suspect]
     Route: 048
  2. BLOOD PRESSURE MEDICATION [Concomitant]
  3. RETROVIRALS [Concomitant]
  4. ANTIDEPRESSANT [Concomitant]

REACTIONS (1)
  - SYNCOPE [None]
